FAERS Safety Report 9221234 (Version 5)
Quarter: 2013Q4

REPORT INFORMATION
  Report Type: Spontaneous
  Country: US (occurrence: US)
  Receive Date: 20130410
  Receipt Date: 20131002
  Transmission Date: 20140711
  Serious: Yes (Hospitalization)
  Sender: FDA-Public Use
  Company Number: US-BIOGENIDEC-2013BI031443

PATIENT
  Age: 41 Year
  Sex: Female
  Weight: 50 kg

DRUGS (1)
  1. TYSABRI [Suspect]
     Indication: CROHN^S DISEASE
     Route: 042
     Dates: start: 20130111, end: 20130722

REACTIONS (10)
  - Anal fistula [Recovered/Resolved]
  - Enterocutaneous fistula [Recovered/Resolved]
  - Wound infection staphylococcal [Recovered/Resolved]
  - Small intestinal obstruction [Unknown]
  - Malnutrition [Unknown]
  - Enterococcal infection [Recovered/Resolved]
  - Female genital tract fistula [Recovered/Resolved]
  - Vaginal abscess [Recovered/Resolved]
  - Enterocolonic fistula [Recovered/Resolved]
  - Depression [Not Recovered/Not Resolved]
